FAERS Safety Report 8045784 (Version 5)
Quarter: 2013Q3

REPORT INFORMATION
  Report Type: Report from Study
  Country: JP (occurrence: JP)
  Receive Date: 20110720
  Receipt Date: 20130722
  Transmission Date: 20140515
  Serious: Yes (Death, Hospitalization, Other)
  Sender: FDA-Public Use
  Company Number: PHHY2011JP28684

PATIENT
  Age: 56 Year
  Sex: Female

DRUGS (18)
  1. AFINITOR [Suspect]
     Indication: METASTATIC RENAL CELL CARCINOMA
     Dosage: 10 MG, DAILY
     Route: 048
     Dates: start: 20110107, end: 20110222
  2. AFINITOR [Suspect]
     Dosage: 10 MG, QD
     Route: 048
     Dates: start: 20110331, end: 20110426
  3. AFINITOR [Suspect]
     Dosage: 10 MG, QD
     Route: 048
     Dates: start: 20110521, end: 20110626
  4. SUNITINIB MALATE [Concomitant]
     Dosage: 50 MG, UNK
     Route: 048
     Dates: start: 20100722, end: 20101216
  5. SUNITINIB MALATE [Concomitant]
     Dosage: 37.5 MG, UNK
     Route: 048
  6. SUNITINIB MALATE [Concomitant]
     Dosage: 25 MG, UNK
  7. CODEINE PHOSPHATE [Concomitant]
     Dosage: 60 MG
     Route: 048
     Dates: start: 20110131, end: 20110221
  8. CODEINE PHOSPHATE [Concomitant]
     Dosage: 60 MG, UNK
  9. CONIEL [Concomitant]
     Dosage: 4 MG
     Route: 048
     Dates: start: 20101210
  10. CONIEL [Concomitant]
     Dosage: 4 MG, UNK
  11. CONIEL [Concomitant]
     Dosage: 4 MG, UNK
     Dates: end: 20110421
  12. ASTOMIN [Concomitant]
     Dosage: 30 MG
     Route: 048
     Dates: start: 20101022, end: 20110323
  13. ASTOMIN [Concomitant]
     Dosage: 60 MG, UNK
     Route: 048
  14. METEBANYL [Concomitant]
     Dosage: 6 MG, UNK
     Route: 048
     Dates: start: 20110222, end: 20110601
  15. URSO [Concomitant]
     Dosage: 300 MG, UNK
     Route: 048
     Dates: start: 20110302, end: 20110323
  16. MUCODYNE [Concomitant]
     Dosage: 1500 MG, UNK
     Route: 048
     Dates: start: 20110304, end: 20110323
  17. MEVALOTIN [Concomitant]
     Indication: HYPERLIPIDAEMIA
     Dosage: 10 MG, UNK
     Route: 048
     Dates: start: 20110422, end: 20110624
  18. PHENOBAL [Concomitant]
     Dosage: 30 MG, UNK
     Route: 048
     Dates: start: 20110603, end: 20110718

REACTIONS (6)
  - Neoplasm [Fatal]
  - Malignant neoplasm progression [Fatal]
  - Pulmonary mycosis [Recovered/Resolved]
  - Pneumonia [Recovered/Resolved]
  - Hepatic function abnormal [Not Recovered/Not Resolved]
  - Blood lactate dehydrogenase increased [Unknown]
